FAERS Safety Report 20605973 (Version 1)
Quarter: 2022Q1

REPORT INFORMATION
  Report Type: Spontaneous
  Country: US (occurrence: US)
  Receive Date: 20220317
  Receipt Date: 20220317
  Transmission Date: 20220423
  Serious: Yes (Other)
  Sender: FDA-Public Use
  Company Number: US-AMGEN-USASP2022044299

PATIENT

DRUGS (1)
  1. BEVACIZUMAB [Suspect]
     Active Substance: BEVACIZUMAB
     Indication: Retinopathy of prematurity
     Dosage: UNK

REACTIONS (23)
  - Type 1 diabetes mellitus [Unknown]
  - Bronchopulmonary dysplasia [Unknown]
  - Cataract [Unknown]
  - Rickets [Unknown]
  - Brain neoplasm [Unknown]
  - Cerebral palsy [Unknown]
  - Autism spectrum disorder [Unknown]
  - Periventricular leukomalacia [Unknown]
  - Quadriplegia [Unknown]
  - Diplegia [Unknown]
  - Intraventricular haemorrhage [Unknown]
  - Haemorrhage intracranial [Unknown]
  - Brachycephaly [Unknown]
  - Chronic respiratory disease [Unknown]
  - Strabismus [Unknown]
  - Amblyopia [Unknown]
  - Nystagmus [Unknown]
  - Attention deficit hyperactivity disorder [Unknown]
  - Neurodevelopmental disorder [Unknown]
  - Plagiocephaly [Unknown]
  - Withdrawal syndrome [Unknown]
  - Nervous system disorder [Unknown]
  - Off label use [Unknown]
